FAERS Safety Report 10595061 (Version 1)
Quarter: 2014Q4

REPORT INFORMATION
  Report Type: Spontaneous
  Country: US (occurrence: None)
  Receive Date: 20141119
  Receipt Date: 20141119
  Transmission Date: 20150529
  Serious: Yes (Death, Hospitalization)
  Sender: FDA-Public Use
  Company Number: None

PATIENT
  Age: 26 Year
  Sex: Female
  Weight: 79.2 kg

DRUGS (6)
  1. DAUNORUBICIN [Suspect]
     Active Substance: DAUNORUBICIN
  2. PEG/L-ASPARAGINASE [Suspect]
     Active Substance: PEGASPARGASE
  3. METHOTREXATE [Suspect]
     Active Substance: METHOTREXATE
  4. PREDNISONE. [Suspect]
     Active Substance: PREDNISONE
  5. VINCRISTINE SULFATE. [Suspect]
     Active Substance: VINCRISTINE SULFATE
  6. CYTARABINE. [Suspect]
     Active Substance: CYTARABINE

REACTIONS (27)
  - Superior sagittal sinus thrombosis [None]
  - Pancreatitis [None]
  - Pain in extremity [None]
  - Swelling [None]
  - Hypertension [None]
  - Streptococcus test positive [None]
  - Cerebral ischaemia [None]
  - Pyrexia [None]
  - Tachycardia [None]
  - Transverse sinus thrombosis [None]
  - Stomatococcal infection [None]
  - Haemodynamic instability [None]
  - Brain oedema [None]
  - Muscle necrosis [None]
  - Renal failure [None]
  - Fluid overload [None]
  - Platelet disorder [None]
  - Dialysis [None]
  - Cerebral haemorrhage [None]
  - Septic shock [None]
  - Coagulopathy [None]
  - Pupil fixed [None]
  - Brain herniation [None]
  - Hepatic failure [None]
  - Mental status changes [None]
  - Compartment syndrome [None]
  - Disseminated intravascular coagulation [None]

NARRATIVE: CASE EVENT DATE: 20141112
